FAERS Safety Report 7436943-4 (Version None)
Quarter: 2011Q2

REPORT INFORMATION
  Report Type: 
  Country: None (occurrence: None)
  Receive Date: 20110418
  Receipt Date: 20110405
  Transmission Date: 20111010
  Serious: Yes (Death)
  Sender: FDA-Public Use
  Company Number: 2011001677

PATIENT
  Age: 80 Year
  Sex: Female

DRUGS (5)
  1. SPIRIVA [Concomitant]
  2. LISINOPRIL [Concomitant]
  3. AMLODIPINE [Concomitant]
  4. ERLOTINIB HYDROCHLORIDE [Suspect]
     Indication: NON-SMALL CELL LUNG CANCER
     Dosage: (150 MG, DAILY), ORAL
     Route: 048
     Dates: start: 20110309, end: 20110326
  5. ZOFRAN [Concomitant]

REACTIONS (2)
  - BLOOD UREA DECREASED [None]
  - BLOOD CHLORIDE DECREASED [None]
